FAERS Safety Report 14146286 (Version 1)
Quarter: 2017Q4

REPORT INFORMATION
  Report Type: Spontaneous
  Country: US (occurrence: US)
  Receive Date: 20171031
  Receipt Date: 20171031
  Transmission Date: 20180321
  Serious: Yes (Hospitalization)
  Sender: FDA-Public Use
  Company Number: US-ROCHE-1208515

PATIENT
  Age: 5 Year
  Sex: Female

DRUGS (1)
  1. NUTROPIN [Suspect]
     Active Substance: SOMATROPIN
     Indication: GROWTH HORMONE DEFICIENCY
     Dosage: 6 DAYS PER WEEK AND TITRATED UPTO 1 MG SUBCUTANEOUS 6 DAYS PER WEEK
     Route: 058

REACTIONS (3)
  - Acquired syringomyelia [Recovering/Resolving]
  - Intentional product use issue [Unknown]
  - Off label use [Unknown]
